FAERS Safety Report 8370170-1 (Version None)
Quarter: 2012Q2

REPORT INFORMATION
  Report Type: 
  Country: None (occurrence: None)
  Receive Date: 20120518
  Receipt Date: 20120511
  Transmission Date: 20120825
  Serious: Yes (Disabling)
  Sender: FDA-Public Use
  Company Number: US-PFIZER INC-2012115148

PATIENT
  Age: 56 Year
  Sex: Female
  Weight: 64 kg

DRUGS (1)
  1. PREPARATION H [Suspect]
     Indication: HAEMORRHOIDS
     Dosage: UNK
     Route: 054
     Dates: start: 19650101

REACTIONS (15)
  - UTERINE DISORDER [None]
  - CONSTIPATION [None]
  - PAINFUL DEFAECATION [None]
  - NASOPHARYNGITIS [None]
  - DIARRHOEA [None]
  - DRUG EFFECT DECREASED [None]
  - ANAEMIA [None]
  - MALAISE [None]
  - GASTROINTESTINAL DISORDER [None]
  - PAIN [None]
  - INFLUENZA [None]
  - HYPOTENSION [None]
  - INJURY [None]
  - INFLAMMATION [None]
  - FIBROMYALGIA [None]
